FAERS Safety Report 15941668 (Version 1)
Quarter: 2019Q1

REPORT INFORMATION
  Report Type: Spontaneous
  Country: US (occurrence: US)
  Receive Date: 20190209
  Receipt Date: 20190209
  Transmission Date: 20190417
  Serious: No
  Sender: FDA-Public Use
  Company Number: None

PATIENT
  Age: 56 Year
  Sex: Female
  Weight: 74.25 kg

DRUGS (10)
  1. LANSOPRAZOLE. [Concomitant]
     Active Substance: LANSOPRAZOLE
  2. EXCEDRIN [Concomitant]
     Active Substance: ACETAMINOPHEN\ASPIRIN\CAFFEINE
  3. VITAMIN D [Concomitant]
     Active Substance: CHOLECALCIFEROL
  4. ELETRIPTAN. [Concomitant]
     Active Substance: ELETRIPTAN
  5. ASHWAGANDHA [Concomitant]
     Active Substance: HERBALS
  6. AIMOVIG [Suspect]
     Active Substance: ERENUMAB-AOOE
     Indication: MIGRAINE
     Dosage: ?          OTHER FREQUENCY:ONCE PER MONTH;OTHER ROUTE:INJECTION?
     Dates: start: 20181207, end: 20190201
  7. METFORMIN [Concomitant]
     Active Substance: METFORMIN HYDROCHLORIDE
  8. PROBIOTICS [Concomitant]
     Active Substance: PROBIOTICS NOS
  9. MULTI VITAMIN [Concomitant]
     Active Substance: VITAMINS
  10. PROPRANOLOL [Concomitant]
     Active Substance: PROPRANOLOL HYDROCHLORIDE

REACTIONS (1)
  - Alopecia [None]

NARRATIVE: CASE EVENT DATE: 20181207
